FAERS Safety Report 26120428 (Version 1)
Quarter: 2025Q4

REPORT INFORMATION
  Report Type: Report from Study
  Country: EU (occurrence: EU)
  Receive Date: 20251204
  Receipt Date: 20251204
  Transmission Date: 20260117
  Serious: Yes (Life-Threatening, Other)
  Sender: AUROBINDO
  Company Number: EU-CELLTRION HEALTHCARE HUNGARY KFT-2021FR013836

PATIENT
  Age: 74 Year

DRUGS (4)
  1. LENALIDOMIDE [Suspect]
     Active Substance: LENALIDOMIDE
     Indication: Central nervous system lymphoma
     Dosage: 25 MILLIGRAM
  2. LENALIDOMIDE [Suspect]
     Active Substance: LENALIDOMIDE
     Dosage: D1-D21
     Route: 065
  3. IBRUTINIB [Suspect]
     Active Substance: IBRUTINIB
     Indication: Central nervous system lymphoma
     Dosage: 560 MILLIGRAM
     Route: 065
  4. RITUXIMAB [Suspect]
     Active Substance: RITUXIMAB
     Indication: Central nervous system lymphoma
     Dosage: 375 MILLIGRAM/SQ. METER
     Route: 065

REACTIONS (7)
  - Arrhythmia [Unknown]
  - Infection [Unknown]
  - Lymphopenia [Unknown]
  - Off label use [Unknown]
  - Toxicity to various agents [Unknown]
  - Therapy cessation [Unknown]
  - Therapy partial responder [Unknown]
